APPROVED DRUG PRODUCT: DIFLUNISAL
Active Ingredient: DIFLUNISAL
Strength: 500MG
Dosage Form/Route: TABLET;ORAL
Application: A074604 | Product #001
Applicant: ANI PHARMACEUTICALS INC
Approved: Jun 10, 1996 | RLD: No | RS: No | Type: DISCN